FAERS Safety Report 4448008-4 (Version None)
Quarter: 2004Q3

REPORT INFORMATION
  Report Type: 
  Country: None (occurrence: None)
  Receive Date: 20040913
  Receipt Date: 20040107
  Transmission Date: 20050211
  Serious: Yes (Hospitalization)
  Sender: FDA-Public Use
  Company Number: US-MERCK-0401USA00498

PATIENT
  Age: 77 Year
  Sex: Female
  Weight: 60 kg

DRUGS (5)
  1. COMBIVENT [Concomitant]
     Route: 065
  2. FOSAMAX [Concomitant]
     Route: 048
  3. ASPIRIN [Concomitant]
     Route: 048
  4. ZETIA [Suspect]
     Indication: HYPERCHOLESTEROLAEMIA
     Route: 048
     Dates: start: 20030603, end: 20031115
  5. ADVAIR DISKUS 100/50 [Concomitant]
     Route: 065

REACTIONS (5)
  - CHEST PAIN [None]
  - CHRONIC OBSTRUCTIVE AIRWAYS DISEASE [None]
  - DRUG INEFFECTIVE [None]
  - OEDEMA PERIPHERAL [None]
  - TACHYCARDIA [None]
